FAERS Safety Report 9194673 (Version 1)
Quarter: 2013Q1

REPORT INFORMATION
  Report Type: Spontaneous
  Country: US (occurrence: US)
  Receive Date: 20130328
  Receipt Date: 20130328
  Transmission Date: 20140127
  Serious: No
  Sender: FDA-Public Use
  Company Number: US-ALLERGAN-1209909US

PATIENT
  Age: 60 Year
  Sex: Female

DRUGS (7)
  1. LATISSE 0.03% [Suspect]
     Indication: GROWTH OF EYELASHES
     Dosage: 2 GTT, UNK
     Route: 061
     Dates: start: 201202
  2. RESTASIS? [Concomitant]
     Indication: DRY EYE
     Dosage: 2 GTT, BID
     Route: 047
  3. REFRESH PLUS [Concomitant]
     Indication: DRY EYE
     Dosage: 2 GTT, UNK
     Route: 047
  4. ESTROGEN CREAM [Concomitant]
     Indication: HORMONE REPLACEMENT THERAPY
     Dosage: UNK
     Route: 061
  5. LOVAZA [Concomitant]
     Indication: CARDIAC DISORDER
     Dosage: UNK
     Route: 048
  6. EVOXAC [Concomitant]
     Indication: DRY MOUTH
     Dosage: UNK
  7. GENTEEL GEL [Concomitant]
     Indication: DRY EYE
     Dosage: UNK, QHS
     Route: 047

REACTIONS (3)
  - Wrong technique in drug usage process [Unknown]
  - Wrong technique in drug usage process [Unknown]
  - Incorrect dose administered [Unknown]
